FAERS Safety Report 18907539 (Version 2)
Quarter: 2021Q1

REPORT INFORMATION
  Report Type: Report from Study
  Country: None (occurrence: IL)
  Receive Date: 20210217
  Receipt Date: 20210322
  Transmission Date: 20210420
  Serious: Yes (Hospitalization, Disabling)
  Sender: FDA-Public Use
  Company Number: IL-ABBVIE-21K-082-3778366-00

PATIENT
  Sex: Male

DRUGS (3)
  1. DUODOPA [Suspect]
     Active Substance: CARBIDOPA\LEVODOPA
     Dosage: CURRENT: MD 8.0 ML, CD DAY 4.7 ML/HOUR, CONTINUOUS NIGHT DOSE 2.3 ML/HOUR, ED 1.5 ML
     Route: 050
  2. DUODOPA [Suspect]
     Active Substance: CARBIDOPA\LEVODOPA
     Indication: PARKINSON^S DISEASE
     Route: 050
     Dates: start: 20190722
  3. DUODOPA [Suspect]
     Active Substance: CARBIDOPA\LEVODOPA
     Dosage: CURRENT: MD 8.0 ML, CD DAY 4.5 ML/HOUR, CONTINUOUS NIGHT DOSE 3.0 ML/HOUR, ED 0.5 ML
     Route: 050

REACTIONS (2)
  - Loss of personal independence in daily activities [Not Recovered/Not Resolved]
  - Psychomotor hyperactivity [Recovering/Resolving]
